FAERS Safety Report 13800053 (Version 4)
Quarter: 2020Q2

REPORT INFORMATION
  Report Type: Spontaneous
  Country: US (occurrence: US)
  Receive Date: 20170727
  Receipt Date: 20200520
  Transmission Date: 20200713
  Serious: No
  Sender: FDA-Public Use
  Company Number: US-JNJFOC-20170604823

PATIENT
  Age: 38 Year
  Sex: Male
  Weight: 56.3 kg

DRUGS (4)
  1. PERMETHRIN. [Concomitant]
     Active Substance: PERMETHRIN
     Indication: ACARODERMATITIS
     Route: 065
     Dates: start: 20151027
  2. ECONAZOLE NITRATE. [Concomitant]
     Active Substance: ECONAZOLE NITRATE
     Indication: FUNGAL SKIN INFECTION
     Route: 065
     Dates: start: 20140215
  3. MENS ROGAINE [Suspect]
     Active Substance: MINOXIDIL
     Indication: ALOPECIA
     Route: 061
     Dates: start: 20140315
  4. CICLOPIROX. [Concomitant]
     Active Substance: CICLOPIROX
     Indication: ONYCHOMYCOSIS
     Route: 061
     Dates: start: 20130115

REACTIONS (9)
  - Erythema [Recovering/Resolving]
  - Skin irritation [Recovering/Resolving]
  - Skin swelling [Recovering/Resolving]
  - Pain of skin [Recovering/Resolving]
  - Fungal skin infection [Recovering/Resolving]
  - Alopecia [Recovering/Resolving]
  - Therapeutic product effect incomplete [Unknown]
  - Hair growth abnormal [Recovering/Resolving]
  - Acne [Recovering/Resolving]

NARRATIVE: CASE EVENT DATE: 20150529
